FAERS Safety Report 9863127 (Version 1)
Quarter: 2014Q1

REPORT INFORMATION
  Report Type: Report from Study
  Country: US (occurrence: US)
  Receive Date: 20140203
  Receipt Date: 20140203
  Transmission Date: 20141002
  Serious: Yes (Hospitalization)
  Sender: FDA-Public Use
  Company Number: US-SA-2014SA010141

PATIENT
  Age: 71 Year
  Sex: Male
  Weight: 90.2 kg

DRUGS (2)
  1. PLERIXAFOR [Suspect]
     Indication: PLASMA CELL MYELOMA
     Dosage: 1,2,3,6,10,13
     Route: 042
     Dates: start: 20131216
  2. VELCADE [Suspect]
     Indication: PRODUCT USED FOR UNKNOWN INDICATION
     Dosage: 1,2,3,6,10,13
     Route: 042
     Dates: start: 20131216

REACTIONS (1)
  - Upper respiratory tract infection [Unknown]
